FAERS Safety Report 9002920 (Version 1)
Quarter: 2013Q1

REPORT INFORMATION
  Report Type: Spontaneous
  Country: US (occurrence: US)
  Receive Date: 20130108
  Receipt Date: 20130108
  Transmission Date: 20140127
  Serious: Yes (Death)
  Sender: FDA-Public Use
  Company Number: US-PFIZER INC-2013007367

PATIENT
  Age: 71 Year
  Sex: Female

DRUGS (6)
  1. PROPANOLOL HCL [Suspect]
     Dosage: UNK
  2. SERTRALINE HCL [Suspect]
     Dosage: UNK
  3. PREGABALIN [Suspect]
     Dosage: UNK
  4. METFORMIN [Suspect]
     Dosage: UNK
  5. ACETAMINOPHEN/OXYCODONE [Suspect]
     Dosage: UNK
  6. LISINOPRIL [Suspect]
     Dosage: UNK

REACTIONS (3)
  - Completed suicide [Fatal]
  - Intentional drug misuse [None]
  - Toxicity to various agents [None]
